FAERS Safety Report 8326443-1 (Version None)
Quarter: 2012Q2

REPORT INFORMATION
  Report Type: 
  Country: None (occurrence: None)
  Receive Date: 20120501
  Receipt Date: 20120418
  Transmission Date: 20120825
  Serious: Yes (Other)
  Sender: FDA-Public Use
  Company Number: VE-ROCHE-1061168

PATIENT
  Sex: Male
  Weight: 55 kg

DRUGS (2)
  1. PEGASYS [Suspect]
     Indication: HEPATITIS C
     Route: 058
     Dates: start: 20120125, end: 20120413
  2. RIBAVIRIN [Suspect]
     Indication: HEPATITIS C
     Route: 048
     Dates: start: 20120125, end: 20120413

REACTIONS (5)
  - MYALGIA [None]
  - ANAEMIA [None]
  - ARTHRALGIA [None]
  - MALAISE [None]
  - ASTHENIA [None]
